FAERS Safety Report 9475277 (Version 1)
Quarter: 2013Q3

REPORT INFORMATION
  Report Type: Spontaneous
  Country: US (occurrence: US)
  Receive Date: 20130826
  Receipt Date: 20130826
  Transmission Date: 20140515
  Serious: No
  Sender: FDA-Public Use
  Company Number: US-B.I. PHARMACEUTICALS,INC./RIDGEFIELD-2013-BI-25499BP

PATIENT
  Sex: Male
  Weight: 85 kg

DRUGS (9)
  1. VIRAMUNE [Suspect]
     Indication: HIV INFECTION
     Dosage: 400 MG
     Route: 048
     Dates: start: 2012
  2. IBU [Concomitant]
     Indication: MIGRAINE
  3. TRUVADA [Concomitant]
     Indication: HIV INFECTION
  4. PHENOBARBITAL [Concomitant]
     Indication: EPILEPSY
  5. PAGNONE [Concomitant]
     Indication: EPILEPSY
  6. PANTROPRAZOLE [Concomitant]
     Indication: GASTROOESOPHAGEAL REFLUX DISEASE
  7. XYZAL [Concomitant]
     Indication: HYPERSENSITIVITY
  8. CALCIUM PLUS D [Concomitant]
     Indication: SUPPLEMENTATION THERAPY
  9. VIT B 12 [Concomitant]
     Indication: VITAMIN B COMPLEX DEFICIENCY

REACTIONS (4)
  - Migraine [Not Recovered/Not Resolved]
  - Depression [Not Recovered/Not Resolved]
  - Asthenia [Not Recovered/Not Resolved]
  - Crying [Not Recovered/Not Resolved]
